FAERS Safety Report 5698268-7 (Version None)
Quarter: 2008Q2

REPORT INFORMATION
  Report Type: 
  Country: None (occurrence: None)
  Receive Date: 20080408
  Receipt Date: 20080327
  Transmission Date: 20081010
  Serious: Yes (Hospitalization)
  Sender: FDA-Public Use
  Company Number: US-PFIZER INC-2008028756

PATIENT
  Sex: Female
  Weight: 97.5 kg

DRUGS (5)
  1. CHANTIX [Suspect]
     Indication: SMOKING CESSATION THERAPY
     Route: 048
     Dates: start: 20080310, end: 20080325
  2. LIPITOR [Concomitant]
  3. PERCOCET [Concomitant]
  4. SENNA [Concomitant]
  5. LIDODERM [Concomitant]

REACTIONS (7)
  - FATIGUE [None]
  - HAEMATURIA [None]
  - HAEMORRHAGE [None]
  - MENSTRUATION IRREGULAR [None]
  - MUSCLE SPASMS [None]
  - OEDEMA PERIPHERAL [None]
  - WEIGHT INCREASED [None]
